FAERS Safety Report 20162030 (Version 1)
Quarter: 2021Q4

REPORT INFORMATION
  Report Type: Spontaneous
  Country: AR (occurrence: AR)
  Receive Date: 20211208
  Receipt Date: 20211208
  Transmission Date: 20220303
  Serious: Yes (Hospitalization)
  Sender: FDA-Public Use
  Company Number: AR-BIOMARINAP-AR-2021-139956

PATIENT
  Age: 10 Year
  Sex: Male
  Weight: 38.2 kg

DRUGS (1)
  1. NAGLAZYME [Suspect]
     Active Substance: GALSULFASE
     Indication: Product used for unknown indication
     Dosage: UNK, QW
     Route: 042

REACTIONS (4)
  - Hip fracture [Recovering/Resolving]
  - Joint dislocation [Recovering/Resolving]
  - Pain in extremity [Recovering/Resolving]
  - Fall [Recovering/Resolving]

NARRATIVE: CASE EVENT DATE: 20211119
